FAERS Safety Report 23384538 (Version 1)
Quarter: 2024Q1

REPORT INFORMATION
  Report Type: Spontaneous
  Country: US (occurrence: US)
  Receive Date: 20240109
  Receipt Date: 20240109
  Transmission Date: 20240410
  Serious: No
  Sender: FDA-Public Use
  Company Number: US-CHIESI-2023CHF00658

PATIENT
  Sex: Female

DRUGS (2)
  1. ZYFLO [Suspect]
     Active Substance: ZILEUTON
     Indication: Product used for unknown indication
     Dosage: UNK
     Route: 065
  2. DUPIXENT [Suspect]
     Active Substance: DUPILUMAB
     Indication: Product used for unknown indication
     Dosage: 300 MG
     Route: 058

REACTIONS (2)
  - Asthma [Unknown]
  - Product dose omission issue [Unknown]
